FAERS Safety Report 6197099-1 (Version None)
Quarter: 2009Q2

REPORT INFORMATION
  Report Type: 
  Country: None (occurrence: None)
  Receive Date: 20090520
  Receipt Date: 20090511
  Transmission Date: 20091009
  Serious: Yes (Other)
  Sender: FDA-Public Use
  Company Number: US-WATSON-2009-03391

PATIENT
  Sex: Female

DRUGS (4)
  1. PROGESTERONE IN OIL INJ [Suspect]
     Indication: IN VITRO FERTILISATION
     Dosage: 1 INJECTION, QPM
     Route: 030
     Dates: start: 20081224, end: 20081229
  2. PROGESTERONE IN OIL INJ [Suspect]
     Dosage: 1 INJECTION, QPM
     Route: 030
     Dates: start: 20081214, end: 20081223
  3. PROGESTERONE [Suspect]
     Indication: IN VITRO FERTILISATION
     Dosage: UNK
     Dates: start: 20081230, end: 20081231
  4. ESTROGEN NOS [Concomitant]
     Indication: IN VITRO FERTILISATION
     Dosage: 2 MG, UNKNOWN
     Route: 048
     Dates: start: 20081101, end: 20090101

REACTIONS (15)
  - ABDOMINAL DISTENSION [None]
  - ABORTION MISSED [None]
  - ABORTION SPONTANEOUS [None]
  - DRUG EXPOSURE DURING PREGNANCY [None]
  - DRUG INEFFECTIVE FOR UNAPPROVED INDICATION [None]
  - ERYTHEMA [None]
  - HYPERSENSITIVITY [None]
  - OEDEMA PERIPHERAL [None]
  - PRODUCT QUALITY ISSUE [None]
  - PRURITUS GENERALISED [None]
  - SKIN DISORDER [None]
  - SWELLING [None]
  - SWELLING FACE [None]
  - URTICARIA [None]
  - VAGINAL HAEMORRHAGE [None]
